FAERS Safety Report 15062493 (Version 1)
Quarter: 2018Q2

REPORT INFORMATION
  Report Type: Spontaneous
  Country: US (occurrence: US)
  Receive Date: 20180625
  Receipt Date: 20180625
  Transmission Date: 20180711
  Serious: No
  Sender: FDA-Public Use
  Company Number: US-AMGEN-USASP2011058500

PATIENT
  Age: 51 Year
  Sex: Female

DRUGS (19)
  1. SENSIPAR [Suspect]
     Active Substance: CINACALCET HYDROCHLORIDE
     Indication: HYPERPARATHYROIDISM SECONDARY
     Dosage: 30 MG, QD
     Dates: start: 20110915
  2. VITAMIN D                          /00107901/ [Concomitant]
     Active Substance: ERGOCALCIFEROL
  3. KAYEXALATE [Concomitant]
     Active Substance: SODIUM POLYSTYRENE SULFONATE
  4. LYRICA [Concomitant]
     Active Substance: PREGABALIN
  5. DIPHENHYDRAMINE. [Concomitant]
     Active Substance: DIPHENHYDRAMINE
     Dosage: 2 MG, QD
  6. K FLEX [Concomitant]
     Active Substance: ORPHENADRINE
     Dosage: 4 MG, QD
  7. OXYCODONE [Concomitant]
     Active Substance: OXYCODONE
  8. PLAVIX [Concomitant]
     Active Substance: CLOPIDOGREL BISULFATE
  9. FISH OIL [Concomitant]
     Active Substance: FISH OIL
  10. OMEPRAZOLE. [Concomitant]
     Active Substance: OMEPRAZOLE
     Dosage: 1 MG, QD
  11. RENVELA [Concomitant]
     Active Substance: SEVELAMER CARBONATE
     Dosage: 3 MG, QD
  12. SODIUM BICARBONATE. [Concomitant]
     Active Substance: SODIUM BICARBONATE
  13. PROZAC [Concomitant]
     Active Substance: FLUOXETINE HYDROCHLORIDE
  14. SENSIPAR [Suspect]
     Active Substance: CINACALCET HYDROCHLORIDE
     Dosage: UNK
     Dates: start: 2008, end: 2008
  15. PROCHLORPERAZINE. [Concomitant]
     Active Substance: PROCHLORPERAZINE
     Dosage: UNK
  16. PREVACID [Concomitant]
     Active Substance: LANSOPRAZOLE
  17. LOVASTATIN. [Concomitant]
     Active Substance: LOVASTATIN
  18. INSULIN [Concomitant]
     Active Substance: INSULIN NOS
  19. COREG [Concomitant]
     Active Substance: CARVEDILOL

REACTIONS (3)
  - Nausea [Recovered/Resolved]
  - Vomiting [Recovered/Resolved]
  - Oral discomfort [Not Recovered/Not Resolved]

NARRATIVE: CASE EVENT DATE: 2008
